FAERS Safety Report 10645738 (Version 2)
Quarter: 2014Q4

REPORT INFORMATION
  Report Type: Spontaneous
  Country: FI (occurrence: FI)
  Receive Date: 20141211
  Receipt Date: 20141211
  Transmission Date: 20150529
  Serious: Yes (Other)
  Sender: FDA-Public Use
  Company Number: CHPA2014FI015702

PATIENT
  Sex: Female

DRUGS (1)
  1. LAMISIL [Suspect]
     Active Substance: TERBINAFINE HYDROCHLORIDE
     Indication: PRODUCT USED FOR UNKNOWN INDICATION
     Dosage: UNK
     Route: 065
     Dates: start: 201411

REACTIONS (15)
  - Asthenia [Unknown]
  - Rash [Unknown]
  - Blister [Unknown]
  - Skin burning sensation [Unknown]
  - Chills [Unknown]
  - Joint swelling [Unknown]
  - Pruritus [Unknown]
  - Pain [Unknown]
  - Enterovirus infection [Unknown]
  - Oropharyngeal pain [Unknown]
  - Rash vesicular [Unknown]
  - Influenza [Unknown]
  - Arthralgia [Unknown]
  - Pyrexia [Unknown]
  - Onychalgia [Unknown]

NARRATIVE: CASE EVENT DATE: 201411
